FAERS Safety Report 4483079-0 (Version None)
Quarter: 2004Q3

REPORT INFORMATION
  Report Type: 
  Country: None (occurrence: None)
  Receive Date: 20040921
  Receipt Date: 20040518
  Transmission Date: 20050211
  Serious: Yes (Death, Hospitalization)
  Sender: FDA-Public Use
  Company Number: 163-20785-04050540 (0)

PATIENT
  Age: 69 Year
  Sex: Female

DRUGS (1)
  1. THALOMID [Suspect]
     Indication: RENAL CELL CARCINOMA STAGE UNSPECIFIED
     Dosage: 100 MG, DAILY ORAL
     Route: 048
     Dates: start: 20031007, end: 20040401

REACTIONS (2)
  - DEATH [None]
  - DISEASE PROGRESSION [None]
